FAERS Safety Report 8500112-7 (Version None)
Quarter: 2012Q3

REPORT INFORMATION
  Report Type: 
  Country: None (occurrence: None)
  Receive Date: 20120710
  Receipt Date: 20120702
  Transmission Date: 20120928
  Serious: Yes (Hospitalization)
  Sender: FDA-Public Use
  Company Number: US-BAYER-2012-023920

PATIENT
  Age: 20 Year
  Sex: Female
  Weight: 90.703 kg

DRUGS (11)
  1. SINGULAIR [Concomitant]
     Dosage: UNK
     Dates: start: 20071119, end: 20080316
  2. DARVOCET [Concomitant]
  3. DILAUDID [Concomitant]
     Indication: HEADACHE
  4. LORATADINE [Concomitant]
  5. YAZ [Suspect]
     Dosage: UNK
     Dates: start: 20080131, end: 20080316
  6. BENADRYL [Concomitant]
     Route: 048
  7. NEFAZODONE HCL [Concomitant]
     Dosage: UNK
     Dates: start: 20070120, end: 20080316
  8. PEPCID [Concomitant]
     Dosage: 20 MG, UNK
  9. METFORMIN HCL [Concomitant]
  10. PREDNISONE TAB [Concomitant]
     Dosage: 60 MG, UNK
  11. TORADOL [Concomitant]
     Indication: HEADACHE

REACTIONS (7)
  - EMOTIONAL DISTRESS [None]
  - ANXIETY [None]
  - STRESS [None]
  - INJURY [None]
  - INTRACRANIAL VENOUS SINUS THROMBOSIS [None]
  - PAIN [None]
  - GENERAL PHYSICAL HEALTH DETERIORATION [None]
